FAERS Safety Report 19077927 (Version 1)
Quarter: 2021Q1

REPORT INFORMATION
  Report Type: Spontaneous
  Country: US (occurrence: US)
  Receive Date: 20210330
  Receipt Date: 20210330
  Transmission Date: 20210420
  Serious: Yes (Hospitalization, Other)
  Sender: FDA-Public Use
  Company Number: None

PATIENT

DRUGS (1)
  1. IOPAMIDOL [Suspect]
     Active Substance: IOPAMIDOL

REACTIONS (6)
  - Headache [None]
  - Abdominal pain upper [None]
  - Anaphylactic reaction [None]
  - Diarrhoea [None]
  - Angioedema [None]
  - Pain [None]

NARRATIVE: CASE EVENT DATE: 20190721
